FAERS Safety Report 17759850 (Version 1)
Quarter: 2020Q2

REPORT INFORMATION
  Report Type: Spontaneous
  Country: US (occurrence: US)
  Receive Date: 20200508
  Receipt Date: 20200508
  Transmission Date: 20200714
  Serious: No
  Sender: FDA-Public Use
  Company Number: US-SA-2020SA116122

PATIENT
  Age: 58 Year
  Sex: Female

DRUGS (7)
  1. DUPIXENT [Suspect]
     Active Substance: DUPILUMAB
     Indication: DERMATITIS ATOPIC
     Dosage: 300 MG, QOW
     Route: 058
     Dates: start: 20190104
  2. TOPIRAMATE. [Concomitant]
     Active Substance: TOPIRAMATE
  3. NALTREXONE [Concomitant]
     Active Substance: NALTREXONE
  4. ZIPRASIDONE. [Concomitant]
     Active Substance: ZIPRASIDONE
  5. ALPRAZOLAM. [Concomitant]
     Active Substance: ALPRAZOLAM
  6. FLUVOXAMINE [Concomitant]
     Active Substance: FLUVOXAMINE
  7. TRIAMCINOLONE [Concomitant]
     Active Substance: TRIAMCINOLONE

REACTIONS (3)
  - Hordeolum [Not Recovered/Not Resolved]
  - Rash [Not Recovered/Not Resolved]
  - Dermatitis atopic [Not Recovered/Not Resolved]
